FAERS Safety Report 25379451 (Version 1)
Quarter: 2025Q2

REPORT INFORMATION
  Report Type: Spontaneous
  Country: US (occurrence: US)
  Receive Date: 20250530
  Receipt Date: 20250530
  Transmission Date: 20250716
  Serious: No
  Sender: ANI
  Company Number: US-ANIPHARMA-022940

PATIENT
  Age: 61 Year
  Sex: Male
  Weight: 85.3 kg

DRUGS (1)
  1. LORAZEPAM [Suspect]
     Active Substance: LORAZEPAM
     Indication: Epilepsy
     Route: 048
     Dates: start: 20250519

REACTIONS (5)
  - Thinking abnormal [Unknown]
  - Brain fog [Unknown]
  - Dizziness [Unknown]
  - Dizziness [Unknown]
  - Headache [Unknown]

NARRATIVE: CASE EVENT DATE: 20250519
